FAERS Safety Report 6473738-2 (Version None)
Quarter: 2009Q4

REPORT INFORMATION
  Report Type: 
  Country: None (occurrence: None)
  Receive Date: 20091204
  Receipt Date: 20091130
  Transmission Date: 20100525
  Serious: Yes (Hospitalization)
  Sender: FDA-Public Use
  Company Number: SE-JNJFOC-20091107844

PATIENT
  Sex: Female

DRUGS (7)
  1. RISPERDAL CONSTA [Suspect]
     Route: 030
  2. RISPERDAL CONSTA [Suspect]
     Route: 030
  3. RISPERDAL CONSTA [Suspect]
     Route: 030
  4. RISPERDAL CONSTA [Suspect]
     Indication: DELUSION
     Route: 030
  5. RISPERIDONE [Suspect]
     Indication: DELUSION
     Route: 065
  6. INFLUENZA VACCINE [Concomitant]
     Route: 065
  7. ESTROGEN [Concomitant]
     Route: 065

REACTIONS (3)
  - DYSPHAGIA [None]
  - MUCOUS MEMBRANE DISORDER [None]
  - NEUROLEPTIC MALIGNANT SYNDROME [None]
